FAERS Safety Report 17145994 (Version 1)
Quarter: 2019Q4

REPORT INFORMATION
  Report Type: Spontaneous
  Country: US (occurrence: US)
  Receive Date: 20191212
  Receipt Date: 20191212
  Transmission Date: 20200122
  Serious: No
  Sender: FDA-Public Use
  Company Number: US-JNJFOC-20191142492

PATIENT
  Sex: Male
  Weight: 21.34 kg

DRUGS (1)
  1. TYLENOL [Suspect]
     Active Substance: ACETAMINOPHEN
     Indication: EAR PAIN
     Dosage: 1 TABLET ONCE
     Route: 048
     Dates: start: 20191125

REACTIONS (1)
  - Product administration error [Unknown]
